FAERS Safety Report 11227978 (Version 4)
Quarter: 2015Q4

REPORT INFORMATION
  Report Type: Report from Study
  Country: US (occurrence: US)
  Receive Date: 20150630
  Receipt Date: 20151112
  Transmission Date: 20160304
  Serious: No
  Sender: FDA-Public Use
  Company Number: US-NOVOPROD-453709

PATIENT
  Age: 6 Year
  Sex: Female
  Weight: 19.1 kg

DRUGS (2)
  1. RECOMBINANT FACTOR XIII HUMAN [Suspect]
     Active Substance: FACTOR XIII CONCENTRATE (HUMAN)
     Indication: FACTOR XIII DEFICIENCY
     Dosage: 35 IU/KG, ONCE A MONTH
     Route: 042
     Dates: start: 20111208
  2. RECOMBINANT FACTOR XIII HUMAN [Suspect]
     Active Substance: FACTOR XIII CONCENTRATE (HUMAN)
     Indication: PROPHYLAXIS

REACTIONS (1)
  - Non-neutralising antibodies [Recovered/Resolved]

NARRATIVE: CASE EVENT DATE: 20150512
